FAERS Safety Report 9183103 (Version 1)
Quarter: 2013Q1

REPORT INFORMATION
  Report Type: Spontaneous
  Country: US (occurrence: US)
  Receive Date: 20130322
  Receipt Date: 20130322
  Transmission Date: 20140127
  Serious: No
  Sender: FDA-Public Use
  Company Number: US-BRISTOL-MYERS SQUIBB COMPANY-16895401

PATIENT
  Age: 70 Year
  Sex: Female
  Weight: 68.03 kg

DRUGS (12)
  1. ERBITUX [Suspect]
     Indication: COLON CANCER
     Dosage: THERAPY ON 1MAY12
     Route: 042
     Dates: start: 20120419
  2. IRINOTECAN [Suspect]
  3. LEUCOVORIN [Suspect]
  4. FLUOROURACIL [Suspect]
  5. COUMADIN [Concomitant]
     Dates: start: 20120501
  6. DIGOXIN [Concomitant]
  7. FISH OIL [Concomitant]
  8. ASPIRIN [Concomitant]
  9. IRON [Concomitant]
  10. METOPROLOL [Concomitant]
     Dosage: 1.5 PILLS DAILY
  11. SIMVASTATIN [Concomitant]
  12. RANITIDINE [Concomitant]
     Dosage: 1/2 OF 150MG PILL BID

REACTIONS (9)
  - Dry skin [Unknown]
  - Skin fissures [Not Recovered/Not Resolved]
  - Skin haemorrhage [Unknown]
  - Rash [Unknown]
  - Skin disorder [Unknown]
  - Dyspnoea [Unknown]
  - Eye infection [Unknown]
  - Diarrhoea [Unknown]
  - Alopecia [Unknown]
